FAERS Safety Report 7275690-9 (Version None)
Quarter: 2011Q1

REPORT INFORMATION
  Report Type: 
  Country: None (occurrence: None)
  Receive Date: 20110204
  Receipt Date: 20110202
  Transmission Date: 20110831
  Serious: Yes (Death, Life-Threatening, Hospitalization, Other)
  Sender: FDA-Public Use
  Company Number: US-ROCHE-757308

PATIENT
  Sex: Female

DRUGS (2)
  1. PEGASYS [Suspect]
     Route: 065
  2. RIBAVARIN [Suspect]
     Route: 065

REACTIONS (4)
  - DEATH [None]
  - ADVERSE DRUG REACTION [None]
  - PNEUMONIA [None]
  - NO THERAPEUTIC RESPONSE [None]
